FAERS Safety Report 8982945 (Version 3)
Quarter: 2013Q1

REPORT INFORMATION
  Report Type: Report from Study
  Country: US (occurrence: US)
  Receive Date: 20121221
  Receipt Date: 20130308
  Transmission Date: 20140127
  Serious: Yes (Death, Hospitalization, Other)
  Sender: FDA-Public Use
  Company Number: US-ABBOTT-12P-163-1023097-00

PATIENT
  Age: 47 Year
  Sex: Female
  Weight: 54.48 kg

DRUGS (17)
  1. HUMIRA [Suspect]
     Indication: RHEUMATOID ARTHRITIS
     Dates: start: 2004, end: 20121112
  2. ESTRADIOL [Concomitant]
     Indication: HORMONE REPLACEMENT THERAPY
  3. CALCIUM [Concomitant]
     Indication: MINERAL SUPPLEMENTATION
  4. CLONOPIN [Concomitant]
     Indication: HYPERTENSION
  5. VASOTEC [Concomitant]
     Indication: HYPERTENSION
  6. LEUKOVORIN [Concomitant]
     Indication: PRODUCT USED FOR UNKNOWN INDICATION
  7. METHOTREXATE [Concomitant]
     Indication: RHEUMATOID ARTHRITIS
  8. NEURONTIN [Concomitant]
     Indication: RHEUMATOID ARTHRITIS
  9. MULTIPLE VITAMIN [Concomitant]
     Indication: VITAMIN SUPPLEMENTATION
  10. OXYCONTIN [Concomitant]
     Indication: RHEUMATOID ARTHRITIS
  11. PREDNISONE [Concomitant]
     Indication: RHEUMATOID ARTHRITIS
  12. TRAZADONE [Concomitant]
     Indication: INSOMNIA
  13. VICODIN [Concomitant]
     Indication: RHEUMATOID ARTHRITIS
  14. CLONAZEPAM [Concomitant]
     Indication: PRODUCT USED FOR UNKNOWN INDICATION
  15. PLAQUENIL [Concomitant]
     Indication: RHEUMATOID ARTHRITIS
  16. ESTROGEN [Concomitant]
     Indication: POSTMENOPAUSE
  17. LEUCOVORIN [Concomitant]
     Indication: RHEUMATOID ARTHRITIS

REACTIONS (6)
  - Atrial rupture [Fatal]
  - Chest injury [Unknown]
  - Convulsion [Unknown]
  - Restlessness [Unknown]
  - Cardiac arrest [Not Recovered/Not Resolved]
  - Cerebral circulatory failure [Unknown]
